FAERS Safety Report 9868202 (Version 1)
Quarter: 2014Q1

REPORT INFORMATION
  Report Type: Report from Study
  Country: NL (occurrence: NL)
  Receive Date: 20140204
  Receipt Date: 20140204
  Transmission Date: 20141002
  Serious: Yes (Hospitalization)
  Sender: FDA-Public Use
  Company Number: NL-ABBVIE-14P-114-1196396-00

PATIENT
  Age: 1 Month
  Sex: Female

DRUGS (1)
  1. SYNAGIS [Suspect]
     Indication: PREMATURE BABY
     Dosage: 33
     Route: 030
     Dates: start: 20131231

REACTIONS (2)
  - Respiratory syncytial virus test positive [Recovered/Resolved]
  - Pyrexia [Unknown]
